FAERS Safety Report 4431606-1 (Version None)
Quarter: 2004Q3

REPORT INFORMATION
  Report Type: 
  Country: None (occurrence: None)
  Receive Date: 20040726
  Receipt Date: 20040331
  Transmission Date: 20050211
  Serious: No
  Sender: FDA-Public Use
  Company Number: REM_00054_2004

PATIENT
  Age: 48 Year
  Sex: Female
  Weight: 42 kg

DRUGS (6)
  1. REMODULIN [Suspect]
     Indication: PULMONARY HYPERTENSION
     Dosage: 5 NG/KG/MIN DAILY SC
     Route: 058
     Dates: start: 20040318, end: 20040328
  2. REMODULIN [Suspect]
     Indication: PULMONARY HYPERTENSION
     Dosage: 5 NG/KG/MIN DAILY SC
     Route: 058
     Dates: start: 20040329
  3. URSODIOL [Concomitant]
  4. AMARYL [Concomitant]
  5. TEVETEN [Concomitant]
  6. LANTUS [Concomitant]

REACTIONS (3)
  - DIARRHOEA [None]
  - DIZZINESS [None]
  - HEADACHE [None]
